FAERS Safety Report 24575409 (Version 2)
Quarter: 2025Q1

REPORT INFORMATION
  Report Type: Spontaneous
  Country: DE (occurrence: DE)
  Receive Date: 20241104
  Receipt Date: 20250129
  Transmission Date: 20250408
  Serious: Yes (Hospitalization, Other)
  Sender: BRISTOL-MYERS SQUIBB COMPANY
  Company Number: DE-BRISTOL-MYERS SQUIBB COMPANY-2024-170134

PATIENT
  Age: 30 Year
  Sex: Male

DRUGS (1)
  1. REBLOZYL [Suspect]
     Active Substance: LUSPATERCEPT-AAMT
     Indication: Thalassaemia beta
     Dosage: ROUTE WAS REPORTED AS INFUSION
     Dates: start: 20240923

REACTIONS (2)
  - Extramedullary haemopoiesis [Unknown]
  - Paraplegia [Unknown]

NARRATIVE: CASE EVENT DATE: 20241013
